FAERS Safety Report 9882134 (Version 2)
Quarter: 2014Q1

REPORT INFORMATION
  Report Type: Report from Study
  Country: AU (occurrence: AU)
  Receive Date: 20140207
  Receipt Date: 20140207
  Transmission Date: 20141002
  Serious: Yes (Other)
  Sender: FDA-Public Use
  Company Number: AU-INCYTE CORPORATION-2014IN000111

PATIENT
  Age: 82 Year
  Sex: Female

DRUGS (3)
  1. JAKAVI [Suspect]
     Indication: MYELOFIBROSIS
     Dosage: 20 MG, BID
     Route: 048
     Dates: start: 2013
  2. JAKAVI [Suspect]
     Dosage: 80 MG, BID
     Route: 048
     Dates: start: 20140115, end: 20140115
  3. JAKAVI [Suspect]
     Dosage: 20 MG, BID
     Route: 048

REACTIONS (2)
  - Overdose [Recovered/Resolved]
  - Haemoglobin decreased [Unknown]
